FAERS Safety Report 5256991-2 (Version None)
Quarter: 2007Q1

REPORT INFORMATION
  Report Type: 
  Country: None (occurrence: None)
  Receive Date: 20070307
  Receipt Date: 20070228
  Transmission Date: 20070707
  Serious: Yes (Hospitalization)
  Sender: FDA-Public Use
  Company Number: 2006UW10959

PATIENT
  Age: 47 Year
  Sex: Male
  Weight: 115 kg

DRUGS (9)
  1. SEROQUEL [Suspect]
     Indication: DEPRESSION
     Route: 048
     Dates: end: 20051101
  2. SEROQUEL [Suspect]
     Indication: ANXIETY
     Route: 048
     Dates: end: 20051101
  3. SEROQUEL [Suspect]
     Indication: POST-TRAUMATIC STRESS DISORDER
     Route: 048
     Dates: end: 20051101
  4. ZYPREXA [Suspect]
     Dates: start: 19980101, end: 20050101
  5. WELLBUTRIN [Concomitant]
  6. NEURONTIN [Concomitant]
  7. REMERON [Concomitant]
  8. PAXIL [Concomitant]
  9. METHADONE HCL [Concomitant]
     Dates: start: 20040701, end: 20050201

REACTIONS (2)
  - CARDIAC DISORDER [None]
  - DIABETES MELLITUS [None]
